FAERS Safety Report 5598162-6 (Version None)
Quarter: 2008Q1

REPORT INFORMATION
  Report Type: 
  Country: None (occurrence: None)
  Receive Date: 20080122
  Receipt Date: 20080114
  Transmission Date: 20080703
  Serious: Yes (Hospitalization)
  Sender: FDA-Public Use
  Company Number: PHRM2008FR00588

PATIENT
  Age: 59 Year
  Sex: Female

DRUGS (2)
  1. COMTAN [Suspect]
     Indication: INTENTIONAL OVERDOSE
     Route: 048
     Dates: end: 20071213
  2. SINEMET [Suspect]
     Indication: INTENTIONAL OVERDOSE
     Dosage: UNK, UNK
     Route: 048
     Dates: end: 20071213

REACTIONS (11)
  - AGITATION [None]
  - BLOOD CREATINE PHOSPHOKINASE INCREASED [None]
  - CONFUSIONAL STATE [None]
  - HALLUCINATION [None]
  - HYPOKALAEMIA [None]
  - HYPONATRAEMIA [None]
  - INTENTIONAL OVERDOSE [None]
  - PERSECUTORY DELUSION [None]
  - SUICIDAL IDEATION [None]
  - SUICIDE ATTEMPT [None]
  - YELLOW SKIN [None]
